FAERS Safety Report 24089253 (Version 1)
Quarter: 2024Q3

REPORT INFORMATION
  Report Type: Spontaneous
  Country: US (occurrence: US)
  Receive Date: 20240715
  Receipt Date: 20240715
  Transmission Date: 20241016
  Serious: No
  Sender: NOVARTIS
  Company Number: US-002147023-NVSC2024US144896

PATIENT
  Age: 56 Year
  Sex: Female

DRUGS (1)
  1. LEQVIO [Suspect]
     Active Substance: INCLISIRAN SODIUM
     Indication: Hyperlipidaemia
     Dosage: 284/1.5 MILLIGRAM PER MILLILITRE (INITIALLY, ANOTHER AT 3 MONTHS- EVERY 6 MONTHS)
     Route: 058

REACTIONS (1)
  - Therapy non-responder [Unknown]
